FAERS Safety Report 6295750-9 (Version None)
Quarter: 2009Q3

REPORT INFORMATION
  Report Type: 
  Country: None (occurrence: None)
  Receive Date: 20090804
  Receipt Date: 20090724
  Transmission Date: 20100115
  Serious: Yes (Life-Threatening, Hospitalization)
  Sender: FDA-Public Use
  Company Number: FR-PFIZER INC-2009247658

PATIENT
  Age: 51 Year

DRUGS (4)
  1. ATARAX [Suspect]
     Dosage: 2 DF, DAILY
     Route: 048
     Dates: start: 20090701, end: 20090703
  2. TAZOCILLINE [Suspect]
     Dosage: 12 G, 3X/DAY
     Route: 042
     Dates: start: 20090701, end: 20090703
  3. MYOLASTAN [Suspect]
     Dosage: 25 MG, DAILY
     Route: 048
     Dates: start: 20090702, end: 20090703
  4. LEXOMIL [Suspect]
     Dosage: 1 DF, DAILY
     Route: 048
     Dates: start: 20090701, end: 20090703

REACTIONS (3)
  - AGRANULOCYTOSIS [None]
  - PYREXIA [None]
  - THROMBOCYTOPENIA [None]
